FAERS Safety Report 11781671 (Version 2)
Quarter: 2015Q4

REPORT INFORMATION
  Report Type: Report from Study
  Country: JP (occurrence: JP)
  Receive Date: 20151126
  Receipt Date: 20151230
  Transmission Date: 20160305
  Serious: Yes (Hospitalization)
  Sender: FDA-Public Use
  Company Number: JP-JNJFOC-20151117065

PATIENT
  Age: 53 Year
  Sex: Male
  Weight: 68.6 kg

DRUGS (15)
  1. TRABECTEDIN [Suspect]
     Active Substance: TRABECTEDIN
     Indication: MYXOID LIPOSARCOMA
     Route: 042
     Dates: start: 20151110, end: 20151111
  2. ANOLEXINON [Concomitant]
     Indication: NAUSEA
     Route: 048
     Dates: start: 20151111
  3. SENNA [Concomitant]
     Active Substance: SENNA LEAF\SENNOSIDES\SENNOSIDES A AND B
     Indication: CONSTIPATION
     Route: 048
     Dates: start: 20151113
  4. UBIDECARENONE [Concomitant]
     Active Substance: UBIDECARENONE
     Indication: CARDIOMYOPATHY
     Route: 048
     Dates: start: 20151018
  5. LOXOPROFEN [Concomitant]
     Active Substance: LOXOPROFEN
     Indication: CANCER PAIN
     Route: 048
     Dates: start: 20151017
  6. ZOLPIDEM [Concomitant]
     Active Substance: ZOLPIDEM\ZOLPIDEM TARTRATE
     Indication: INSOMNIA
     Route: 048
     Dates: start: 20151013
  7. REBAMIPIDE [Concomitant]
     Active Substance: REBAMIPIDE
     Indication: GASTROINTESTINAL DISORDER THERAPY
     Route: 048
     Dates: start: 20151017
  8. TATHION [Suspect]
     Active Substance: GLUTATHIONE
     Indication: TRANSAMINASES INCREASED
     Route: 048
     Dates: start: 20151114
  9. URSODEOXYCHOLIC ACID [Suspect]
     Active Substance: URSODIOL
     Indication: TRANSAMINASES INCREASED
     Route: 048
     Dates: start: 20151114
  10. TAKEPRON [Concomitant]
     Active Substance: LANSOPRAZOLE
     Indication: ABDOMINAL DISCOMFORT
     Route: 048
     Dates: start: 20151112
  11. TRAMAL [Concomitant]
     Active Substance: TRAMADOL
     Indication: CANCER PAIN
     Route: 048
     Dates: start: 20151018
  12. MAGMITT [Concomitant]
     Active Substance: MAGNESIUM OXIDE
     Indication: CONSTIPATION
     Route: 048
     Dates: start: 20151113
  13. TRAMAL [Concomitant]
     Active Substance: TRAMADOL
     Indication: CANCER PAIN
     Route: 048
     Dates: start: 20151018
  14. ETIZOLAM [Concomitant]
     Active Substance: ETIZOLAM
     Indication: INSOMNIA
     Route: 048
     Dates: start: 20151013
  15. TRABECTEDIN [Suspect]
     Active Substance: TRABECTEDIN
     Route: 042

REACTIONS (1)
  - Abdominal pain [Recovered/Resolved]

NARRATIVE: CASE EVENT DATE: 20151116
